FAERS Safety Report 17158214 (Version 1)
Quarter: 2019Q4

REPORT INFORMATION
  Report Type: Spontaneous
  Country: US (occurrence: US)
  Receive Date: 20191122
  Receipt Date: 20191122
  Transmission Date: 20200122
  Serious: No
  Sender: FDA-Public Use
  Company Number: None

PATIENT
  Age: 57 Year
  Sex: Male

DRUGS (1)
  1. COSENTYX [Suspect]
     Active Substance: SECUKINUMAB
     Dosage: OTHER
     Route: 058
     Dates: start: 201911

REACTIONS (5)
  - Insurance issue [None]
  - Pain [None]
  - Skin exfoliation [None]
  - Swelling [None]
  - Therapy cessation [None]

NARRATIVE: CASE EVENT DATE: 20191122
